FAERS Safety Report 7563451-2 (Version None)
Quarter: 2011Q2

REPORT INFORMATION
  Report Type: 
  Country: None (occurrence: None)
  Receive Date: 20110622
  Receipt Date: 20110609
  Transmission Date: 20111010
  Serious: Yes (Hospitalization)
  Sender: FDA-Public Use
  Company Number: DE-ELI_LILLY_AND_COMPANY-DE201106002377

PATIENT
  Age: 39 Year
  Sex: Male

DRUGS (3)
  1. SOLIAN [Concomitant]
  2. CYMBALTA [Suspect]
     Indication: PSYCHOTIC DISORDER
     Dosage: 60 MG, QD
     Route: 048
     Dates: start: 20110201
  3. RISPERIDONE [Concomitant]

REACTIONS (4)
  - HALLUCINATION, AUDITORY [None]
  - OFF LABEL USE [None]
  - PSYCHOTIC DISORDER [None]
  - HOSPITALISATION [None]
